FAERS Safety Report 10073420 (Version 1)
Quarter: 2014Q2

REPORT INFORMATION
  Report Type: Spontaneous
  Country: US (occurrence: US)
  Receive Date: 20140411
  Receipt Date: 20140411
  Transmission Date: 20141212
  Serious: Yes (Death)
  Sender: FDA-Public Use
  Company Number: US-INCYTE CORPORATION-2014IN000948

PATIENT
  Sex: Male
  Weight: 81.63 kg

DRUGS (11)
  1. JAKAFI [Suspect]
     Indication: MYELOFIBROSIS
     Dosage: 15 MG, BID
     Route: 048
     Dates: start: 20131007
  2. EFFEXOR [Concomitant]
  3. PREDNISONE [Concomitant]
  4. PLAQUENIL                          /00072602/ [Concomitant]
  5. LEVOTHYROXINE [Concomitant]
  6. POTASSIUM [Concomitant]
  7. MAGNESIUM [Concomitant]
  8. MULTIVITAMIN                       /00097801/ [Concomitant]
  9. ALPHA LIPOIC ACID [Concomitant]
  10. L-LYSINE                           /00919901/ [Concomitant]
  11. GABAPENTIN [Concomitant]

REACTIONS (1)
  - Death [Fatal]
